FAERS Safety Report 21284142 (Version 1)
Quarter: 2022Q3

REPORT INFORMATION
  Report Type: Spontaneous
  Country: US (occurrence: US)
  Receive Date: 20220902
  Receipt Date: 20220902
  Transmission Date: 20221026
  Serious: Yes (Hospitalization, Other)
  Sender: FDA-Public Use
  Company Number: US-SUN PHARMACEUTICAL INDUSTRIES LTD-2022R1-353174

PATIENT
  Age: 33 Year
  Sex: Female

DRUGS (5)
  1. LITHIUM [Suspect]
     Active Substance: LITHIUM
     Indication: Brief psychotic disorder, with postpartum onset
     Dosage: UNK
     Route: 065
     Dates: start: 202011
  2. LITHIUM [Suspect]
     Active Substance: LITHIUM
     Dosage: GRADUALLY INCREASED
     Route: 065
  3. MIRTAZAPINE [Suspect]
     Active Substance: MIRTAZAPINE
     Indication: Brief psychotic disorder, with postpartum onset
     Dosage: UNK
     Route: 065
     Dates: start: 202011
  4. OLANZAPINE [Suspect]
     Active Substance: OLANZAPINE
     Indication: Brief psychotic disorder, with postpartum onset
     Dosage: UNK
     Route: 065
     Dates: start: 202011
  5. HALOPERIDOL [Suspect]
     Active Substance: HALOPERIDOL
     Indication: Brief psychotic disorder, with postpartum onset
     Dosage: UNK
     Route: 065
     Dates: start: 202011

REACTIONS (8)
  - Acute respiratory failure [Recovering/Resolving]
  - Cerebral atrophy [Recovering/Resolving]
  - Therapy partial responder [Unknown]
  - Exposure during pregnancy [Unknown]
  - Hypotension [Recovering/Resolving]
  - Pyrexia [Recovering/Resolving]
  - Lethargy [Recovering/Resolving]
  - Pre-eclampsia [Recovering/Resolving]
